FAERS Safety Report 20557291 (Version 6)
Quarter: 2023Q1

REPORT INFORMATION
  Report Type: Spontaneous
  Country: US (occurrence: US)
  Receive Date: 20220307
  Receipt Date: 20230103
  Transmission Date: 20230417
  Serious: No
  Sender: FDA-Public Use
  Company Number: US-PFIZER INC-202101191915

PATIENT
  Age: 49 Year
  Sex: Female

DRUGS (4)
  1. SOMAVERT [Suspect]
     Active Substance: PEGVISOMANT
     Indication: Acromegaly
     Dosage: 30 MG, ALTERNATE DAY
     Route: 058
     Dates: start: 20210509
  2. SOMAVERT [Suspect]
     Active Substance: PEGVISOMANT
     Dosage: 30 MG, ALTERNATE DAY (EVERY 48 HOURS)
     Route: 058
     Dates: start: 20210905, end: 20220211
  3. SOMAVERT [Suspect]
     Active Substance: PEGVISOMANT
     Dosage: 30 MG, DAILY
     Route: 058
     Dates: start: 20210905
  4. LANREOTIDE [Concomitant]
     Active Substance: LANREOTIDE
     Dosage: UNK (STARTED IN JUN)

REACTIONS (6)
  - Injection site pain [Recovering/Resolving]
  - Insulin-like growth factor abnormal [Not Recovered/Not Resolved]
  - Injection site hypertrophy [Unknown]
  - Skin hypertrophy [Not Recovered/Not Resolved]
  - Off label use [Unknown]
  - Product dose omission issue [Unknown]
